FAERS Safety Report 21296637 (Version 1)
Quarter: 2022Q3

REPORT INFORMATION
  Report Type: Spontaneous
  Country: US (occurrence: US)
  Receive Date: 20220906
  Receipt Date: 20220906
  Transmission Date: 20221026
  Serious: Yes (Hospitalization)
  Sender: FDA-Public Use
  Company Number: US-AUROBINDO-AUR-APL-2022-033720

PATIENT
  Age: 75 Year
  Sex: Male

DRUGS (7)
  1. METHYLPREDNISOLONE [Suspect]
     Active Substance: METHYLPREDNISOLONE
     Indication: Back pain
     Dosage: UNK
     Route: 065
     Dates: start: 201703
  2. METHYLPREDNISOLONE [Suspect]
     Active Substance: METHYLPREDNISOLONE
     Indication: Radiculopathy
     Dosage: UNK
     Route: 065
     Dates: start: 201812
  3. LIDOCAINE [Concomitant]
     Active Substance: LIDOCAINE
     Indication: Epiduroscopy
     Dosage: UNK
     Route: 065
  4. LIDOCAINE [Concomitant]
     Active Substance: LIDOCAINE
     Indication: Anaesthesia
  5. OMNIPAQUE [Concomitant]
     Active Substance: IOHEXOL
     Indication: Epiduroscopy
     Dosage: 4 MILLILITER
     Route: 065
  6. OMNIPAQUE [Concomitant]
     Active Substance: IOHEXOL
     Dosage: 8 MILLILITER
     Route: 065
  7. BUPIVACAINE [Concomitant]
     Active Substance: BUPIVACAINE
     Indication: Product used for unknown indication
     Dosage: 1 MILLILITER
     Route: 065

REACTIONS (1)
  - Conus medullaris syndrome [Not Recovered/Not Resolved]
